FAERS Safety Report 20516946 (Version 2)
Quarter: 2022Q2

REPORT INFORMATION
  Report Type: Spontaneous
  Country: US (occurrence: US)
  Receive Date: 20220225
  Receipt Date: 20220411
  Transmission Date: 20220721
  Serious: Yes (Death, Hospitalization, Other)
  Sender: FDA-Public Use
  Company Number: US-AMGEN-USASP2022029418

PATIENT

DRUGS (1)
  1. BEVACIZUMAB [Suspect]
     Active Substance: BEVACIZUMAB
     Indication: Retinopathy of prematurity
     Route: 065

REACTIONS (9)
  - Death [Fatal]
  - Multiple organ dysfunction syndrome [Unknown]
  - Organ failure [Unknown]
  - Bacteraemia [Unknown]
  - Necrotising colitis [Unknown]
  - Bronchopulmonary dysplasia [Unknown]
  - Intraventricular haemorrhage [Unknown]
  - Retinopathy of prematurity [Unknown]
  - Intestinal perforation [Unknown]
